FAERS Safety Report 17677536 (Version 1)
Quarter: 2020Q2

REPORT INFORMATION
  Report Type: Spontaneous
  Country: US (occurrence: US)
  Receive Date: 20200416
  Receipt Date: 20200416
  Transmission Date: 20200714
  Serious: Yes (Other)
  Sender: FDA-Public Use
  Company Number: US-ROCHE-2314649

PATIENT
  Sex: Female

DRUGS (1)
  1. KADCYLA [Suspect]
     Active Substance: ADO-TRASTUZUMAB EMTANSINE
     Indication: TRIPLE NEGATIVE BREAST CANCER
     Route: 065

REACTIONS (3)
  - Neuropathy peripheral [Unknown]
  - Vomiting [Unknown]
  - Nausea [Unknown]
